FAERS Safety Report 13106502 (Version 2)
Quarter: 2017Q1

REPORT INFORMATION
  Report Type: Spontaneous
  Country: US (occurrence: US)
  Receive Date: 20170111
  Receipt Date: 20170216
  Transmission Date: 20170428
  Serious: Yes (Hospitalization)
  Sender: FDA-Public Use
  Company Number: US-TEVA-729151ACC

PATIENT
  Age: 69 Year
  Sex: Female

DRUGS (1)
  1. COPAXONE [Suspect]
     Active Substance: GLATIRAMER ACETATE
     Indication: MULTIPLE SCLEROSIS
     Dosage: FORM STRENGTH: UNKNOWN
     Route: 058
     Dates: start: 20121012

REACTIONS (7)
  - Nausea [Unknown]
  - Injury [Recovering/Resolving]
  - Drug dose omission [Unknown]
  - Dizziness [Unknown]
  - Fall [Recovering/Resolving]
  - Abasia [Unknown]
  - Head injury [Recovering/Resolving]

NARRATIVE: CASE EVENT DATE: 20161102
